FAERS Safety Report 8611648-2 (Version None)
Quarter: 2012Q3

REPORT INFORMATION
  Report Type: 
  Country: None (occurrence: None)
  Receive Date: 20120822
  Receipt Date: 20120817
  Transmission Date: 20120928
  Serious: No
  Sender: FDA-Public Use
  Company Number: US-PFIZER INC-2012202492

PATIENT
  Age: 55 Year
  Sex: Female
  Weight: 73.016 kg

DRUGS (3)
  1. LYRICA [Suspect]
     Indication: NEUROPATHY PERIPHERAL
     Dosage: 25 MG, 1X/DAY
     Route: 048
     Dates: start: 20120806, end: 20120810
  2. LYRICA [Suspect]
     Indication: NEURALGIA
     Dosage: 25 MG, 2X/DAY
     Route: 048
     Dates: start: 20120810
  3. BYSTOLIC [Concomitant]
     Indication: SINUS TACHYCARDIA
     Dosage: UNK

REACTIONS (2)
  - OEDEMA PERIPHERAL [None]
  - WEIGHT INCREASED [None]
